FAERS Safety Report 16251686 (Version 1)
Quarter: 2019Q2

REPORT INFORMATION
  Report Type: Spontaneous
  Country: IN (occurrence: IN)
  Receive Date: 20190429
  Receipt Date: 20190429
  Transmission Date: 20190711
  Serious: Yes (Hospitalization)
  Sender: FDA-Public Use
  Company Number: IN-OXFORD PHARMACEUTICALS, LLC-2019OXF00066

PATIENT
  Age: 49 Year
  Sex: Female

DRUGS (1)
  1. AMLODIPINE/TELMISARTAN [Suspect]
     Active Substance: AMLODIPINE\TELMISARTAN
     Indication: HYPERTENSION
     Route: 065

REACTIONS (1)
  - Linear IgA disease [Recovered/Resolved]
